FAERS Safety Report 14966971 (Version 20)
Quarter: 2021Q2

REPORT INFORMATION
  Report Type: Spontaneous
  Country: JP (occurrence: JP)
  Receive Date: 20180604
  Receipt Date: 20210617
  Transmission Date: 20210716
  Serious: Yes (Death, Life-Threatening, Hospitalization, Other)
  Sender: FDA-Public Use
  Company Number: JP-009507513-1804JPN002139J

PATIENT
  Age: 57 Year
  Sex: Male
  Weight: 62 kg

DRUGS (1)
  1. KEYTRUDA [Suspect]
     Active Substance: PEMBROLIZUMAB
     Indication: CARCINOID TUMOUR PULMONARY
     Dosage: 200 MILLIGRAM, Q3W
     Route: 041
     Dates: start: 20180209, end: 20180323

REACTIONS (11)
  - Septic shock [Fatal]
  - Immune-mediated enterocolitis [Fatal]
  - Muscle disorder [Unknown]
  - Cytomegalovirus infection [Unknown]
  - Quadriplegia [Fatal]
  - Blood pressure decreased [Unknown]
  - Neuropathy peripheral [Unknown]
  - Intestinal perforation [Recovered/Resolved with Sequelae]
  - Bronchopulmonary aspergillosis [Fatal]
  - Diarrhoea [Not Recovered/Not Resolved]
  - Haematochezia [Unknown]

NARRATIVE: CASE EVENT DATE: 2018
